FAERS Safety Report 25024067 (Version 1)
Quarter: 2025Q1

REPORT INFORMATION
  Report Type: Spontaneous
  Country: US (occurrence: None)
  Receive Date: 20250228
  Receipt Date: 20250228
  Transmission Date: 20250409
  Serious: Yes (Hospitalization)
  Sender: FDA-CTU
  Company Number: None

PATIENT
  Age: 61 Year
  Sex: Male
  Weight: 63 kg

DRUGS (3)
  1. METFORMIN HYDROCHLORIDE [Suspect]
     Active Substance: METFORMIN HYDROCHLORIDE
     Indication: Diabetes mellitus
     Dosage: FREQUENCY : TWICE A DAY;?
     Route: 048
     Dates: start: 20210709
  2. METHOTREXATE [Suspect]
     Active Substance: METHOTREXATE
  3. INFLIXIMAB [Suspect]
     Active Substance: INFLIXIMAB

REACTIONS (17)
  - Pneumonia [None]
  - Sepsis [None]
  - Lactic acidosis [None]
  - Therapy interrupted [None]
  - Acute respiratory failure [None]
  - Emphysema [None]
  - Cardiomyopathy [None]
  - Cardiac failure acute [None]
  - Chronic obstructive pulmonary disease [None]
  - Pulmonary hypertension [None]
  - Cardiogenic shock [None]
  - Pulmonary fibrosis [None]
  - Acute respiratory failure [None]
  - Septic shock [None]
  - Toxicity to various agents [None]
  - Red blood cell transfusion [None]
  - Tricuspid valve incompetence [None]

NARRATIVE: CASE EVENT DATE: 20240507
